FAERS Safety Report 5118577-X (Version None)
Quarter: 2006Q4

REPORT INFORMATION
  Report Type: 
  Country: None (occurrence: None)
  Receive Date: 20061002
  Receipt Date: 20060922
  Transmission Date: 20070319
  Serious: Yes (Life-Threatening)
  Sender: FDA-Public Use
  Company Number: GB-BAYER-200611166BNE

PATIENT
  Weight: 4.3 kg

DRUGS (1)
  1. NIFEDIPINE [Suspect]
     Route: 042
     Dates: start: 20060922

REACTIONS (1)
  - BLOOD PRESSURE DECREASED [None]
